FAERS Safety Report 6641961-X (Version None)
Quarter: 2010Q1

REPORT INFORMATION
  Report Type: 
  Country: None (occurrence: None)
  Receive Date: 20100319
  Receipt Date: 20100308
  Transmission Date: 20100710
  Serious: Yes (Death)
  Sender: FDA-Public Use
  Company Number: AU-JNJFOC-20100304227

PATIENT
  Age: 32 Year
  Sex: Female

DRUGS (7)
  1. TRAMADOL HYDROCHLORIDE [Suspect]
     Indication: DRUG USE FOR UNKNOWN INDICATION
     Route: 065
  2. DOXEPIN HCL [Concomitant]
  3. CODEINE SULFATE [Concomitant]
  4. TETRAHYDROCANNABINOL [Concomitant]
  5. DIAZEPAM [Concomitant]
  6. NAPROXEN [Concomitant]
  7. PARACETAMOL [Concomitant]

REACTIONS (2)
  - DEATH [None]
  - OVERDOSE [None]
